FAERS Safety Report 9463197 (Version 2)
Quarter: 2015Q2

REPORT INFORMATION
  Report Type: Spontaneous
  Country: FR (occurrence: FR)
  Receive Date: 20130818
  Receipt Date: 20150424
  Transmission Date: 20150821
  Serious: Yes (Other)
  Sender: FDA-Public Use
  Company Number: PHHY2013FR086870

PATIENT
  Age: 56 Year
  Sex: Male

DRUGS (2)
  1. ASPIRIN. [Concomitant]
     Active Substance: ASPIRIN
     Indication: PERIPHERAL ARTERIAL OCCLUSIVE DISEASE
     Route: 065
  2. HEPARIN [Suspect]
     Active Substance: HEPARIN SODIUM
     Indication: THROMBOSIS IN DEVICE
     Route: 042
     Dates: start: 20110107, end: 20110203

REACTIONS (5)
  - Thrombosis in device [Unknown]
  - Monoplegia [Unknown]
  - Pulmonary embolism [Unknown]
  - Heparin-induced thrombocytopenia [Unknown]
  - Venous thrombosis [Unknown]

NARRATIVE: CASE EVENT DATE: 20110122
